FAERS Safety Report 6582108-8 (Version None)
Quarter: 2010Q1

REPORT INFORMATION
  Report Type: 
  Country: None (occurrence: None)
  Receive Date: 20100212
  Receipt Date: 20100212
  Transmission Date: 20100710
  Serious: Yes (Hospitalization)
  Sender: FDA-Public Use
  Company Number: None

PATIENT
  Sex: Female
  Weight: 67.27 kg

DRUGS (2)
  1. CARBOPLATIN [Suspect]
     Dosage: 447 MG
  2. TAXOL [Suspect]
     Dosage: 287 MG

REACTIONS (4)
  - DIARRHOEA [None]
  - GASTROINTESTINAL DISORDER [None]
  - ILEAL STENOSIS [None]
  - INTESTINAL DILATATION [None]
